FAERS Safety Report 24323385 (Version 1)
Quarter: 2024Q3

REPORT INFORMATION
  Report Type: Spontaneous
  Country: US (occurrence: US)
  Receive Date: 20240916
  Receipt Date: 20240916
  Transmission Date: 20241017
  Serious: Yes (Other)
  Sender: PFIZER
  Company Number: US-PFIZER INC-202400253342

PATIENT
  Age: 65 Year
  Sex: Female
  Weight: 81.6 kg

DRUGS (8)
  1. BEVACIZUMAB [Suspect]
     Active Substance: BEVACIZUMAB
     Dosage: UNK, CYCLIC
     Dates: start: 20230125, end: 20230816
  2. OXALIPLATIN [Suspect]
     Active Substance: OXALIPLATIN
     Dosage: UNK, CYCLIC
     Dates: start: 20230125, end: 20230816
  3. FLUOROURACIL [Suspect]
     Active Substance: FLUOROURACIL
     Dosage: UNK, CYCLIC
     Dates: start: 20230125, end: 20230816
  4. LEUCOVORIN CALCIUM [Suspect]
     Active Substance: LEUCOVORIN CALCIUM
     Dosage: UNK, CYCLIC
     Dates: start: 20230125, end: 20230816
  5. HYDRATION VITAMIN [Concomitant]
     Dosage: UNK
     Dates: start: 20230210, end: 20230210
  6. INJECTAFER [Concomitant]
     Active Substance: FERRIC CARBOXYMALTOSE
     Dosage: UNK Q (EVERY) 7 DAYX2
     Route: 042
     Dates: start: 20230221, end: 20230221
  7. VENOFER [Concomitant]
     Active Substance: IRON SUCROSE
     Dosage: 200 MG Q(EVERY)2D X5
     Route: 042
     Dates: start: 20230308, end: 20230308
  8. VENOFER [Concomitant]
     Active Substance: IRON SUCROSE
     Dosage: 200 MG Q(EVERY)7D
     Route: 042
     Dates: start: 20230428

REACTIONS (1)
  - Neuropathy peripheral [Unknown]
